FAERS Safety Report 6821966-6 (Version None)
Quarter: 2010Q3

REPORT INFORMATION
  Report Type: 
  Country: None (occurrence: None)
  Receive Date: 20100708
  Receipt Date: 20100628
  Transmission Date: 20110219
  Serious: No
  Sender: FDA-Public Use
  Company Number: 2008BI030553

PATIENT
  Sex: Female

DRUGS (2)
  1. TYSABRI [Suspect]
     Indication: MULTIPLE SCLEROSIS
     Route: 042
     Dates: start: 20080822, end: 20090710
  2. TYSABRI [Suspect]
     Route: 042
     Dates: start: 20091207

REACTIONS (2)
  - ASTHENIA [None]
  - MUSCULAR WEAKNESS [None]
